FAERS Safety Report 5792680-3 (Version None)
Quarter: 2008Q2

REPORT INFORMATION
  Report Type: 
  Country: None (occurrence: None)
  Receive Date: 20080624
  Receipt Date: 20080610
  Transmission Date: 20081010
  Serious: Yes (Death)
  Sender: FDA-Public Use
  Company Number: 2008AL005113

PATIENT
  Age: 96 Year
  Sex: Female
  Weight: 40.8237 kg

DRUGS (1)
  1. DIGOXIN [Suspect]
     Indication: CARDIAC DISORDER
     Dosage: 0.125MG DAILY PO
     Route: 048
     Dates: start: 20071031, end: 20080319

REACTIONS (4)
  - CARDIAC FAILURE [None]
  - HEART RATE DECREASED [None]
  - HEART RATE IRREGULAR [None]
  - OVERDOSE [None]
